FAERS Safety Report 24129623 (Version 2)
Quarter: 2024Q3

REPORT INFORMATION
  Report Type: Report from Study
  Country: US (occurrence: US)
  Receive Date: 20240724
  Receipt Date: 20240812
  Transmission Date: 20241017
  Serious: Yes (Death, Hospitalization, Other)
  Sender: HLS THERAPEUTICS
  Company Number: US-HLS-202400286

PATIENT

DRUGS (1)
  1. CLOZAPINE [Suspect]
     Active Substance: CLOZAPINE
     Indication: Schizophrenia
     Dosage: 300 MG DAILY
     Route: 065

REACTIONS (8)
  - Cellulitis [Fatal]
  - Critical illness [Fatal]
  - Hypotension [Fatal]
  - Leukocytosis [Fatal]
  - Death [Fatal]
  - Staphylococcal scalded skin syndrome [Fatal]
  - Urticaria [Fatal]
  - Urinary tract infection [Fatal]
